FAERS Safety Report 7364451-8 (Version None)
Quarter: 2011Q1

REPORT INFORMATION
  Report Type: 
  Country: None (occurrence: None)
  Receive Date: 20110315
  Receipt Date: 20110315
  Transmission Date: 20110831
  Serious: Yes (Life-Threatening, Hospitalization)
  Sender: FDA-Public Use
  Company Number: None

PATIENT
  Age: 14 Year
  Sex: Female
  Weight: 44.4525 kg

DRUGS (1)
  1. DULERA TABLET [Suspect]
     Indication: ASTHMA
     Dosage: ONE PUFFS DAILY PO
     Route: 048
     Dates: start: 20110101, end: 20110310

REACTIONS (12)
  - OROPHARYNGEAL PAIN [None]
  - NERVOUS SYSTEM DISORDER [None]
  - HYPERTENSION [None]
  - HYPOVENTILATION [None]
  - HEART RATE INCREASED [None]
  - CHEST DISCOMFORT [None]
  - CHEST PAIN [None]
  - CARDIAC DISORDER [None]
  - DYSPNOEA [None]
  - NERVOUSNESS [None]
  - HYPOXIA [None]
  - DIZZINESS [None]
